FAERS Safety Report 6573996-X (Version None)
Quarter: 2010Q1

REPORT INFORMATION
  Report Type: 
  Country: None (occurrence: None)
  Receive Date: 20100208
  Receipt Date: 20100202
  Transmission Date: 20100710
  Serious: Yes (Other)
  Sender: FDA-Public Use
  Company Number: JP-JNJFOC-20100111548

PATIENT
  Age: 87 Year
  Sex: Male

DRUGS (9)
  1. DUROTEP MT PATCH [Suspect]
     Indication: CANCER PAIN
     Route: 062
  2. MORPHINE HYDROCHLORIDE [Suspect]
     Indication: DRUG USE FOR UNKNOWN INDICATION
  3. CARVEDILOL [Concomitant]
     Route: 048
  4. CEROCRAL [Concomitant]
     Route: 048
  5. GASTER [Concomitant]
     Route: 048
  6. MIYA BM [Concomitant]
     Route: 048
  7. GRAMALIL [Concomitant]
     Route: 048
  8. CLARITHROMYCIN [Concomitant]
     Route: 048
  9. NICORANDIL [Concomitant]
     Route: 048

REACTIONS (3)
  - BLOOD PRESSURE INCREASED [None]
  - DRUG PRESCRIBING ERROR [None]
  - WRONG TECHNIQUE IN DRUG USAGE PROCESS [None]
